FAERS Safety Report 4283256-8 (Version None)
Quarter: 2004Q1

REPORT INFORMATION
  Report Type: 
  Country: None (occurrence: None)
  Receive Date: 20040129
  Receipt Date: 20040120
  Transmission Date: 20041129
  Serious: Yes (Death)
  Sender: FDA-Public Use
  Company Number: 2004AP00290

PATIENT
  Age: 24 Year
  Sex: Male

DRUGS (1)
  1. DIPRIVAN [Suspect]
     Indication: GENERAL ANAESTHESIA
     Dosage: 1 %
     Dates: start: 20040108, end: 20040108

REACTIONS (2)
  - DIALYSIS [None]
  - LIVER DISORDER [None]
